FAERS Safety Report 5745883-8 (Version None)
Quarter: 2008Q2

REPORT INFORMATION
  Report Type: 
  Country: None (occurrence: None)
  Receive Date: 20080521
  Receipt Date: 20080508
  Transmission Date: 20081010
  Serious: Yes (Death, Hospitalization)
  Sender: FDA-Public Use
  Company Number: DK-GENENTECH-261108

PATIENT
  Sex: Male

DRUGS (6)
  1. BEVACIZUMAB [Suspect]
     Indication: BRAIN NEOPLASM
     Dosage: 870 MG, Q2W
     Route: 042
     Dates: start: 20080423
  2. IRINOTECAN HCL [Suspect]
     Indication: BRAIN NEOPLASM
     Dosage: 261.3 MG, Q2W
     Route: 042
     Dates: start: 20080423
  3. ATROPIN [Concomitant]
     Indication: DRUG USE FOR UNKNOWN INDICATION
     Dates: start: 20080403
  4. ZOFRAN [Concomitant]
     Indication: DRUG USE FOR UNKNOWN INDICATION
     Dates: start: 20080403
  5. PREDNISOLONE [Concomitant]
     Indication: DRUG USE FOR UNKNOWN INDICATION
     Dates: start: 20060601
  6. MAREVAN [Concomitant]
     Indication: DRUG USE FOR UNKNOWN INDICATION
     Dates: start: 20060101

REACTIONS (1)
  - DEATH [None]
